FAERS Safety Report 18085394 (Version 1)
Quarter: 2020Q3

REPORT INFORMATION
  Report Type: Spontaneous
  Country: US (occurrence: US)
  Receive Date: 20200728
  Receipt Date: 20200728
  Transmission Date: 20201103
  Serious: Yes (Hospitalization)
  Sender: FDA-Public Use
  Company Number: None

PATIENT
  Sex: Female

DRUGS (22)
  1. TURMERIC [Concomitant]
     Active Substance: HERBALS\TURMERIC
  2. CLONIDINE HCL [Concomitant]
     Active Substance: CLONIDINE HYDROCHLORIDE
  3. LORAZEPAM. [Concomitant]
     Active Substance: LORAZEPAM
  4. ONDANSETRON ODT [Concomitant]
     Active Substance: ONDANSETRON
  5. BISACODYL. [Concomitant]
     Active Substance: BISACODYL
  6. FLUTICASONE PROPIONATE. [Concomitant]
     Active Substance: FLUTICASONE PROPIONATE
  7. PROPRANOLOL [Suspect]
     Active Substance: PROPRANOLOL HYDROCHLORIDE
     Indication: PRODUCT USED FOR UNKNOWN INDICATION
  8. ARNICARE ARNICA [Concomitant]
  9. CHILDRENS TYLENOL [Concomitant]
     Active Substance: ACETAMINOPHEN
  10. LANSOPRAZOLE. [Concomitant]
     Active Substance: LANSOPRAZOLE
  11. SODIUM CHLORIDE. [Concomitant]
     Active Substance: SODIUM CHLORIDE
  12. ARNICARE ARNICA [Concomitant]
  13. CLOTRIMAZOLE. [Concomitant]
     Active Substance: CLOTRIMAZOLE
  14. OMEGA?3?6?9 [Concomitant]
  15. EMU OIL [Concomitant]
     Active Substance: EMU OIL
  16. ATIVAN [Concomitant]
     Active Substance: LORAZEPAM
  17. ERGOCALCIFEROL. [Concomitant]
     Active Substance: ERGOCALCIFEROL
  18. TOBRAMYCIN. [Concomitant]
     Active Substance: TOBRAMYCIN
  19. ONDANSETRON ODT [Concomitant]
     Active Substance: ONDANSETRON
  20. NYSTATIN. [Concomitant]
     Active Substance: NYSTATIN
  21. FLUCONAZOLE. [Concomitant]
     Active Substance: FLUCONAZOLE
  22. OXYBUTYNIN CHLORIDE. [Concomitant]
     Active Substance: OXYBUTYNIN CHLORIDE

REACTIONS (7)
  - Mutism [None]
  - Myalgia [None]
  - Posture abnormal [None]
  - Musculoskeletal stiffness [None]
  - Hyperhidrosis [None]
  - Diarrhoea [None]
  - Breath holding [None]
